FAERS Safety Report 7389338-6 (Version None)
Quarter: 2011Q2

REPORT INFORMATION
  Report Type: 
  Country: None (occurrence: None)
  Receive Date: 20110401
  Receipt Date: 20110322
  Transmission Date: 20111010
  Serious: Yes (Hospitalization)
  Sender: FDA-Public Use
  Company Number: A0920404A

PATIENT
  Age: 47 Day
  Sex: Female
  Weight: 93.6 kg

DRUGS (14)
  1. LAPATINIB [Suspect]
     Indication: BREAST CANCER
     Dosage: 750MG PER DAY
     Route: 048
     Dates: start: 20101217
  2. ACYCLOVIR [Concomitant]
     Dosage: 910MG THREE TIMES PER DAY
     Route: 042
     Dates: start: 20110115, end: 20110116
  3. ACETAMINOPHEN [Concomitant]
     Dosage: 650MG AS REQUIRED
     Route: 048
     Dates: start: 20110115
  4. VALTREX [Concomitant]
     Dosage: 1G THREE TIMES PER DAY
     Route: 048
  5. DOCETAXEL [Suspect]
     Dosage: 75MGM2 EVERY 3 WEEKS
     Route: 042
     Dates: start: 20101217
  6. CLINDAMYCIN [Concomitant]
     Dosage: 300MG FOUR TIMES PER DAY
     Route: 048
  7. LOVENOX [Concomitant]
     Route: 058
  8. NEUPOGEN [Concomitant]
  9. CARBOPLATIN [Suspect]
     Route: 042
     Dates: start: 20101217
  10. ACYCLOVIR [Concomitant]
     Dosage: 800MG FIVE TIMES PER DAY
     Route: 048
     Dates: start: 20110116, end: 20110124
  11. NYSTATIN [Concomitant]
     Dosage: 1APP VARIABLE DOSE
  12. PROTONIX [Concomitant]
     Dosage: 40MG PER DAY
     Route: 048
  13. VANCOMYCIN [Concomitant]
     Dosage: 1G SINGLE DOSE
     Route: 042
  14. VANCOMYCIN [Concomitant]
     Dosage: 1250MG THREE TIMES PER DAY
     Route: 042

REACTIONS (2)
  - WOUND INFECTION [None]
  - RASH [None]
